FAERS Safety Report 7451513-X (Version None)
Quarter: 2011Q2

REPORT INFORMATION
  Report Type: 
  Country: None (occurrence: None)
  Receive Date: 20110425
  Receipt Date: 20110421
  Transmission Date: 20111010
  Serious: Yes (Death, Other)
  Sender: FDA-Public Use
  Company Number: 2006SP007860

PATIENT
  Age: 66 Year
  Sex: Female
  Weight: 48 kg

DRUGS (7)
  1. FAMOTIDINE [Concomitant]
  2. DEPAKENE [Suspect]
     Indication: EPILEPSY
     Dosage: PO
     Route: 048
     Dates: start: 20061024, end: 20061224
  3. MAGMITT [Concomitant]
  4. RINDERON (BETAMETHASONE [Concomitant]
  5. TEMODAL [Suspect]
     Indication: GLIOBLASTOMA MULTIFORME
     Dosage: 150 MGM2;QD; PO
     Route: 048
     Dates: start: 20061030, end: 20061103
  6. FURSENNID [Concomitant]
  7. EXCEGRAN [Concomitant]

REACTIONS (5)
  - GAMMA-GLUTAMYLTRANSFERASE INCREASED [None]
  - NEOPLASM PROGRESSION [None]
  - ALANINE AMINOTRANSFERASE INCREASED [None]
  - ASPARTATE AMINOTRANSFERASE INCREASED [None]
  - GLIOBLASTOMA MULTIFORME [None]
